FAERS Safety Report 7331914-0 (Version None)
Quarter: 2011Q1

REPORT INFORMATION
  Report Type: 
  Country: None (occurrence: None)
  Receive Date: 20110304
  Receipt Date: 20100119
  Transmission Date: 20110831
  Serious: Yes (Hospitalization, Other)
  Sender: FDA-Public Use
  Company Number: US-PFIZER INC-2010007912

PATIENT
  Sex: Female

DRUGS (3)
  1. PHENOBARBITONE [Concomitant]
     Indication: CONVULSION
     Dosage: 60 MG, 1X/DAY
  2. DILANTIN [Suspect]
     Indication: CONVULSION
     Dosage: 100 MG, 2X/DAY
     Route: 048
     Dates: start: 20030901, end: 20031001
  3. DILANTIN [Suspect]
     Dosage: UNK
     Route: 051
     Dates: start: 20030914

REACTIONS (1)
  - STEVENS-JOHNSON SYNDROME [None]
